FAERS Safety Report 8033978-8 (Version None)
Quarter: 2012Q1

REPORT INFORMATION
  Report Type: 
  Country: None (occurrence: None)
  Receive Date: 20120110
  Receipt Date: 20120105
  Transmission Date: 20120608
  Serious: Yes (Hospitalization, Disabling)
  Sender: FDA-Public Use
  Company Number: US-MERCK-1111USA01292

PATIENT
  Age: 52 Year
  Sex: Female

DRUGS (3)
  1. ALENDRONATE SODIUM [Suspect]
     Indication: OSTEOPOROSIS
     Route: 048
     Dates: start: 20090801, end: 20100401
  2. FOSAMAX [Suspect]
     Indication: OSTEOPOROSIS
     Route: 048
     Dates: start: 19960101, end: 20070301
  3. FOSAMAX PLUS D [Suspect]
     Indication: OSTEOPOROSIS
     Route: 048
     Dates: start: 20070301, end: 20080601

REACTIONS (10)
  - FEMUR FRACTURE [None]
  - FOOT FRACTURE [None]
  - TOOTH DISORDER [None]
  - DEPRESSION [None]
  - ACCIDENT AT WORK [None]
  - CONCUSSION [None]
  - FACIAL BONES FRACTURE [None]
  - LOW TURNOVER OSTEOPATHY [None]
  - ARTHRITIS [None]
  - FALL [None]
